FAERS Safety Report 14243846 (Version 1)
Quarter: 2017Q4

REPORT INFORMATION
  Report Type: Spontaneous
  Country: BR (occurrence: BR)
  Receive Date: 20171201
  Receipt Date: 20171201
  Transmission Date: 20180321
  Serious: Yes (Hospitalization, Other)
  Sender: FDA-Public Use
  Company Number: BR-BAYER-2017-228292

PATIENT
  Age: 36 Year
  Sex: Female

DRUGS (2)
  1. MIRENA [Suspect]
     Active Substance: LEVONORGESTREL
     Indication: MENSTRUAL CYCLE MANAGEMENT
     Dosage: 20 MCG/24HR, CONT
     Route: 015
     Dates: start: 20150819, end: 201607
  2. MIRENA [Suspect]
     Active Substance: LEVONORGESTREL

REACTIONS (9)
  - Amenorrhoea [Recovered/Resolved]
  - Pelvic infection [Recovered/Resolved]
  - Device dislocation [Recovered/Resolved]
  - Hypomenorrhoea [Recovered/Resolved]
  - Vaginal haemorrhage [None]
  - Abdominal pain [Recovered/Resolved]
  - Off label use [None]
  - Product use in unapproved indication [None]
  - Guillain-Barre syndrome [Not Recovered/Not Resolved]

NARRATIVE: CASE EVENT DATE: 201508
